FAERS Safety Report 4301651-5 (Version None)
Quarter: 2004Q1

REPORT INFORMATION
  Report Type: 
  Country: None (occurrence: None)
  Receive Date: 20040223
  Receipt Date: 20040218
  Transmission Date: 20041129
  Serious: Yes (Other)
  Sender: FDA-Public Use
  Company Number: 200412214GDDC

PATIENT
  Age: 73 Year
  Sex: Male

DRUGS (7)
  1. TAKEPRON [Suspect]
     Indication: REFLUX OESOPHAGITIS
     Route: 048
     Dates: start: 20040203, end: 20040206
  2. PENICILLIN G [Suspect]
     Dosage: DOSE: UNK
     Route: 051
     Dates: start: 20040130, end: 20040212
  3. LASIX [Suspect]
     Route: 048
     Dates: end: 20040209
  4. PRIMPERAN INJ [Suspect]
     Route: 048
     Dates: end: 20040209
  5. SELBEX [Suspect]
     Route: 048
     Dates: end: 20040209
  6. GASTER [Suspect]
     Route: 048
     Dates: end: 20040202
  7. ROCEPHIN [Suspect]
     Route: 051
     Dates: start: 20040119, end: 20040129

REACTIONS (3)
  - ALANINE AMINOTRANSFERASE INCREASED [None]
  - ASPARTATE AMINOTRANSFERASE INCREASED [None]
  - HYPERBILIRUBINAEMIA [None]
